FAERS Safety Report 7758010 (Version 5)
Quarter: 2014Q2

REPORT INFORMATION
  Report Type: Spontaneous
  Country: JP (occurrence: JP)
  Receive Date: 20110112
  Receipt Date: 20140511
  Transmission Date: 20141212
  Serious: Yes (Hospitalization)
  Sender: FDA-Public Use
  Company Number: JP-MERCK-0705USA00511

PATIENT
  Age: 79 Year
  Sex: Male
  Weight: 47 kg

DRUGS (9)
  1. LOSARTAN POTASSIUM (+) HYDROCHLOROTHIAZIDE [Suspect]
     Indication: HYPERTENSION
     Dosage: TOTAL DAILY DOSE: 1 DF, DIVIDED DOSE FREQUENCY UNKNOWN
     Route: 048
     Dates: start: 200702, end: 20070221
  2. VASOLAN [Concomitant]
     Dosage: 40 MG, BID
     Route: 048
     Dates: end: 20070221
  3. BAYASPIRIN [Concomitant]
     Dosage: TOTAL DAILY DOSE: 100 MG, DIVIDED DOSE FREQUENCY UNKNOWN(FORMULATION : ENT)
     Route: 048
     Dates: end: 20070221
  4. HALFDIGOXIN [Concomitant]
     Dosage: TOTAL DAILY DOSE: 0.125 MG, DIVIDED DOSE FREQUENCY UNKNOWN
     Route: 048
     Dates: end: 20070221
  5. OMEPRAL [Concomitant]
     Dosage: 10 MG, QD
     Route: 048
     Dates: end: 20070221
  6. URIEF [Concomitant]
     Dosage: 4 MG, BID
     Route: 048
     Dates: end: 20070221
  7. BEPRICOR [Concomitant]
     Dosage: 50 MG, TID
     Route: 048
     Dates: end: 20070221
  8. DISOPYRAMIDE [Concomitant]
     Dosage: DAILY DOSE UNKNOWN(FORMULATION: POR)
     Route: 048
  9. ALPRAZOLAM [Concomitant]
     Dosage: DAILY DOSE UNKNOWN
     Route: 048

REACTIONS (7)
  - Hypoproteinaemia [Recovered/Resolved]
  - Hypoalbuminaemia [Recovered/Resolved]
  - Hypolipidaemia [Recovered/Resolved]
  - Hypoglycaemia [Recovered/Resolved]
  - Hypochloraemia [Recovered/Resolved]
  - Hyponatraemia [Recovered/Resolved]
  - Hypokalaemia [Recovered/Resolved]
